FAERS Safety Report 23619524 (Version 1)
Quarter: 2024Q1

REPORT INFORMATION
  Report Type: Spontaneous
  Country: BR (occurrence: BR)
  Receive Date: 20240312
  Receipt Date: 20240312
  Transmission Date: 20240410
  Serious: No
  Sender: FDA-Public Use
  Company Number: BR-WW-2024-AMR-020224

PATIENT
  Sex: Male

DRUGS (1)
  1. AVODART [Suspect]
     Active Substance: DUTASTERIDE
     Dosage: 1 DF, QOD
     Route: 065

REACTIONS (2)
  - Libido decreased [Unknown]
  - Inappropriate schedule of product administration [Unknown]
